FAERS Safety Report 24894924 (Version 5)
Quarter: 2025Q1

REPORT INFORMATION
  Report Type: Spontaneous
  Country: FR (occurrence: FR)
  Receive Date: 20250128
  Receipt Date: 20250212
  Transmission Date: 20250408
  Serious: Yes (Other)
  Sender: PFIZER
  Company Number: FR-PFIZER INC-202400333091

PATIENT
  Age: 74 Year
  Sex: Male
  Weight: 76 kg

DRUGS (5)
  1. ELIQUIS [Interacting]
     Active Substance: APIXABAN
     Indication: Blood pressure abnormal
     Dosage: 5 MG TWICE DAILY (EVERYDAY)
     Route: 048
     Dates: start: 202209
  2. ELIQUIS [Interacting]
     Active Substance: APIXABAN
     Dosage: 5 MG TWICE DAILY (EVERYDAY)
     Route: 048
     Dates: start: 20221007
  3. VYNDAQEL [Interacting]
     Active Substance: TAFAMIDIS MEGLUMINE
     Indication: Cardiac amyloidosis
     Dosage: 61 MG, 1X/DAY (EVERYDAY)
     Route: 048
     Dates: start: 202410, end: 20241225
  4. PERINDOPRIL [Interacting]
     Active Substance: PERINDOPRIL
     Dosage: 2 MG, DAILY
     Route: 048
     Dates: start: 20221007
  5. INFLUENZA VIRUS VACCINE [Concomitant]
     Active Substance: INFLUENZA VIRUS VACCINE
     Indication: Influenza immunisation
     Dates: start: 202411, end: 202411

REACTIONS (7)
  - Cardiac amyloidosis [Unknown]
  - Cataract [Unknown]
  - Drug interaction [Not Recovered/Not Resolved]
  - Memory impairment [Not Recovered/Not Resolved]
  - Off label use [Unknown]
  - Intentional product misuse [Unknown]
  - Product dose omission in error [Unknown]

NARRATIVE: CASE EVENT DATE: 20220901
